FAERS Safety Report 14807141 (Version 3)
Quarter: 2018Q3

REPORT INFORMATION
  Report Type: Spontaneous
  Country: JP (occurrence: JP)
  Receive Date: 20180425
  Receipt Date: 20180720
  Transmission Date: 20181010
  Serious: Yes (Hospitalization, Other)
  Sender: FDA-Public Use
  Company Number: JP-SA-2018SA113517

PATIENT
  Age: 62 Year
  Sex: Female
  Weight: 66.2 kg

DRUGS (9)
  1. ZALTRAP [Suspect]
     Active Substance: ZIV-AFLIBERCEPT
     Indication: RECTAL CANCER
     Dosage: 260 MG, QD
     Route: 042
     Dates: start: 20170912, end: 20170925
  2. DEXART [Concomitant]
     Active Substance: DEXAMETHASONE SODIUM PHOSPHATE
     Indication: PRODUCT USED FOR UNKNOWN INDICATION
     Dosage: 6.6 MG, QD
     Route: 065
  3. LEVOFOLINATE [CALCIUM LEVOFOLINATE] [Concomitant]
     Dosage: 325 MG, QD
     Route: 042
     Dates: start: 20170912, end: 20170925
  4. FLUOROURACIL. [Concomitant]
     Active Substance: FLUOROURACIL
     Dosage: 650 MG, QD
     Route: 042
     Dates: start: 20170912, end: 20170925
  5. LEVOFOLINATE [CALCIUM LEVOFOLINATE] [Concomitant]
     Indication: RECTAL CANCER
     Dosage: UNK UNK, QD
     Route: 042
     Dates: start: 20161208, end: 20170702
  6. FLUOROURACIL. [Concomitant]
     Active Substance: FLUOROURACIL
     Dosage: 3900 MG, QD
     Route: 042
     Dates: start: 20170912, end: 20170925
  7. TOPOTECIN [Concomitant]
     Active Substance: IRINOTECAN HYDROCHLORIDE
     Indication: RECTAL CANCER
     Dosage: 240 MG, QD
     Route: 042
     Dates: start: 20170912, end: 20170925
  8. FLUOROURACIL. [Concomitant]
     Active Substance: FLUOROURACIL
     Indication: RECTAL CANCER
     Dosage: UNK
     Route: 042
     Dates: start: 20161208, end: 20170702
  9. ALOXI [Concomitant]
     Active Substance: PALONOSETRON HYDROCHLORIDE
     Indication: PRODUCT USED FOR UNKNOWN INDICATION
     Dosage: 0.75 MG, QD
     Route: 042

REACTIONS (5)
  - Pyrexia [Recovered/Resolved]
  - Febrile neutropenia [Recovered/Resolved]
  - Hypertension [Recovered/Resolved]
  - Intestinal obstruction [Recovered/Resolved]
  - Proteinuria [Recovered/Resolved]

NARRATIVE: CASE EVENT DATE: 20170915
